FAERS Safety Report 4920181-0 (Version None)
Quarter: 2006Q1

REPORT INFORMATION
  Report Type: 
  Country: None (occurrence: None)
  Receive Date: 20060223
  Receipt Date: 20060117
  Transmission Date: 20060701
  Serious: Yes (Other)
  Sender: FDA-Public Use
  Company Number: GBWYE306917JAN06

PATIENT
  Sex: Male
  Weight: 87 kg

DRUGS (9)
  1. ENBREL [Suspect]
     Indication: DRUG USE FOR UNKNOWN INDICATION
     Route: 058
     Dates: start: 20051114
  2. DICLOFENAC [Concomitant]
  3. SULFASALAZINE [Concomitant]
     Dosage: 500MG, FREQUENCY UNSPECIFIED
  4. FOLIC ACID [Concomitant]
     Dosage: 5MG WEEKLY
  5. CO-CODAMOL [Concomitant]
     Dosage: 8 TABLETS DAILY (ALTERNATES WITH PARACETAMOL)
  6. ACETAMINOPHEN [Concomitant]
     Dosage: 500MG DAILY, ALTERNATES WITH CO-CODAMOL)
  7. PREDNISOLONE [Concomitant]
  8. FERROUS SULFATE TAB [Concomitant]
  9. METHOTREXATE [Concomitant]

REACTIONS (1)
  - DIARRHOEA [None]
